FAERS Safety Report 22259663 (Version 1)
Quarter: 2023Q2

REPORT INFORMATION
  Report Type: Spontaneous
  Country: US (occurrence: None)
  Receive Date: 20230426
  Receipt Date: 20230426
  Transmission Date: 20230722
  Serious: No
  Sender: FDA-Public Use
  Company Number: None

PATIENT
  Age: 73 Year
  Sex: Female
  Weight: 76.05 kg

DRUGS (3)
  1. DOXYCYCLINE HYCLATE [Suspect]
     Active Substance: DOXYCYCLINE HYCLATE
     Indication: Tooth infection
     Dosage: FREQUENCY : DAILY;?
     Route: 048
     Dates: start: 20230423
  2. ATENOLOL [Concomitant]
     Active Substance: ATENOLOL
  3. ASPIRIN [Concomitant]
     Active Substance: ASPIRIN

REACTIONS (3)
  - Peripheral coldness [None]
  - Feeling cold [None]
  - Gastrointestinal disorder [None]

NARRATIVE: CASE EVENT DATE: 20230424
